FAERS Safety Report 5264624-4 (Version None)
Quarter: 2007Q1

REPORT INFORMATION
  Report Type: 
  Country: None (occurrence: None)
  Receive Date: 20061122
  Receipt Date: 20060216
  Transmission Date: 20070707
  Serious: Yes (Life-Threatening)
  Sender: FDA-Public Use
  Company Number: 2006MP000177

PATIENT
  Age: 52 Year
  Sex: Female

DRUGS (1)
  1. GLIADEL [Suspect]
     Indication: GLIOBLASTOMA
     Dosage: X1; ICERE
     Dates: start: 20051206

REACTIONS (3)
  - CENTRAL NERVOUS SYSTEM INFECTION [None]
  - PROPIONIBACTERIUM INFECTION [None]
  - STAPHYLOCOCCAL INFECTION [None]
